FAERS Safety Report 12499912 (Version 1)
Quarter: 2016Q2

REPORT INFORMATION
  Report Type: Spontaneous
  Country: US (occurrence: None)
  Receive Date: 20160624
  Receipt Date: 20160624
  Transmission Date: 20160815
  Serious: Yes (Other)
  Sender: FDA-Public Use
  Company Number: None

PATIENT
  Age: 57 Year
  Sex: Male
  Weight: 73.5 kg

DRUGS (1)
  1. TBO-FILGRASTIM [Suspect]
     Active Substance: TBO-FILGRASTIM
     Indication: NEUTROPENIA
     Route: 058
     Dates: start: 20160618, end: 20160618

REACTIONS (4)
  - Musculoskeletal pain [None]
  - Hypersensitivity [None]
  - Abdominal pain [None]
  - Angioedema [None]

NARRATIVE: CASE EVENT DATE: 20160619
